FAERS Safety Report 7984003-6 (Version None)
Quarter: 2011Q4

REPORT INFORMATION
  Report Type: 
  Country: None (occurrence: None)
  Receive Date: 20111216
  Receipt Date: 20111208
  Transmission Date: 20120403
  Serious: Yes (Hospitalization)
  Sender: FDA-Public Use
  Company Number: KR-PFIZER INC-2011300127

PATIENT
  Age: 48 Year
  Sex: Male
  Weight: 74.5 kg

DRUGS (10)
  1. ACETAMINOPHEN [Concomitant]
     Indication: HEADACHE
     Dosage: UNK
     Dates: start: 20110225
  2. MYOTONINE [Concomitant]
     Indication: MUSCLE RELAXANT THERAPY
     Dosage: UNK
     Dates: start: 20110225
  3. LEVOFLOXACIN [Concomitant]
     Indication: ANTIBIOTIC PROPHYLAXIS
     Dosage: UNK
     Dates: start: 20110329, end: 20110407
  4. SUNITINIB MALATE [Suspect]
     Indication: RENAL CELL CARCINOMA
     Dosage: 50 MG, 1X/DAY
     Route: 048
     Dates: start: 20110225, end: 20110324
  5. DUPHALAC [Concomitant]
     Indication: LAXATIVE SUPPORTIVE CARE
     Dosage: UNK
     Dates: start: 20110225
  6. ACETYLCYSTEINE [Concomitant]
     Indication: PRODUCTIVE COUGH
     Dosage: UNK
     Dates: start: 20110326, end: 20110330
  7. CEFTRIAXONE [Concomitant]
     Indication: ANTIBIOTIC PROPHYLAXIS
     Dosage: UNK
     Dates: start: 20110328, end: 20110404
  8. TAMSULOSIN HCL [Concomitant]
     Indication: BENIGN PROSTATIC HYPERPLASIA
     Dosage: UNK
     Dates: start: 20110225
  9. OXYCONTIN [Concomitant]
     Indication: BONE PAIN
     Dosage: UNK
     Dates: start: 20110303
  10. MAGMIL [Concomitant]
     Indication: LAXATIVE SUPPORTIVE CARE
     Dosage: UNK
     Dates: start: 20110225

REACTIONS (1)
  - PNEUMONIA ASPIRATION [None]
